FAERS Safety Report 8808815 (Version 1)
Quarter: 2012Q4

REPORT INFORMATION
  Report Type: 
  Country: GB (occurrence: GB)
  Receive Date: 20120926
  Receipt Date: 20120926
  Transmission Date: 20130627
  Serious: Yes (Death, Other)
  Sender: FDA-Public Use
  Company Number: GB-PFIZER INC-2012236044

PATIENT
  Age: 47 Year

DRUGS (3)
  1. METHOTREXATE SODIUM [Suspect]
     Indication: RHEUMATOID ARTHRITIS
     Dosage: 10 mg, weekly
     Route: 048
     Dates: start: 2005
  2. METHOTREXATE SODIUM [Suspect]
     Dosage: 25 mg, weekly
     Route: 058
  3. SULFASALAZINE [Suspect]
     Indication: RHEUMATOID ARTHRITIS

REACTIONS (1)
  - Leukaemia [Fatal]
